FAERS Safety Report 9302720 (Version 2)
Quarter: 2013Q3

REPORT INFORMATION
  Report Type: Spontaneous
  Country: US (occurrence: US)
  Receive Date: 20130522
  Receipt Date: 20130725
  Transmission Date: 20140515
  Serious: Yes (Hospitalization, Other)
  Sender: FDA-Public Use
  Company Number: PHEH2013US011185

PATIENT
  Sex: Male

DRUGS (11)
  1. DIOVAN [Suspect]
     Dosage: 160 MG, UNK
     Dates: start: 2000
  2. LYRICA [Suspect]
     Dosage: UNK UKN, UNK
  3. LANTUS [Concomitant]
     Dosage: UNK UKN, UNK
  4. AMLODIPINE [Concomitant]
     Dosage: 5 MG, UNK
  5. CARVEDILOL [Concomitant]
     Dosage: 25 MG, UNK
  6. GLYBURIDE [Concomitant]
     Dosage: 5 MG, UNK
  7. ATORVASTATIN CALCIUM [Concomitant]
     Dosage: UNK UKN, UNK
  8. WARFARIN [Concomitant]
     Dosage: UNK UKN, UNK
  9. LIPITOR [Concomitant]
  10. CARVILOL [Concomitant]
  11. OMEPRAZOLE [Concomitant]

REACTIONS (6)
  - Pyrexia [Unknown]
  - White blood cell count increased [Unknown]
  - Asthenia [Unknown]
  - Neuropathy peripheral [Unknown]
  - Cardiac disorder [Unknown]
  - Hypoacusis [Unknown]
